FAERS Safety Report 8055498-7 (Version None)
Quarter: 2012Q1

REPORT INFORMATION
  Report Type: 
  Country: None (occurrence: None)
  Receive Date: 20120119
  Receipt Date: 20120111
  Transmission Date: 20120608
  Serious: Yes (Other)
  Sender: FDA-Public Use
  Company Number: KR-JNJFOC-20120103598

PATIENT
  Sex: Female
  Weight: 50 kg

DRUGS (4)
  1. STILLEN [Concomitant]
     Indication: VOMITING
     Route: 065
     Dates: start: 20111229, end: 20111229
  2. OPALMON [Concomitant]
     Indication: PARAESTHESIA
     Route: 065
     Dates: start: 20111229, end: 20111229
  3. ULTRACET [Suspect]
     Indication: PAIN MANAGEMENT
     Route: 048
     Dates: start: 20111229, end: 20111229
  4. STILLEN [Concomitant]
     Indication: NAUSEA
     Route: 065
     Dates: start: 20111229, end: 20111229

REACTIONS (1)
  - LOSS OF CONSCIOUSNESS [None]
